FAERS Safety Report 18395197 (Version 3)
Quarter: 2020Q4

REPORT INFORMATION
  Report Type: Spontaneous
  Country: DE (occurrence: DE)
  Receive Date: 20201017
  Receipt Date: 20201222
  Transmission Date: 20210114
  Serious: Yes (Hospitalization)
  Sender: FDA-Public Use
  Company Number: DE-ROCHE-2694837

PATIENT
  Age: 39 Year
  Sex: Male
  Weight: 75 kg

DRUGS (3)
  1. OCREVUS [Suspect]
     Active Substance: OCRELIZUMAB
     Indication: RELAPSING-REMITTING MULTIPLE SCLEROSIS
     Route: 042
     Dates: start: 201804
  2. DEKRISTOL [Concomitant]
     Active Substance: CHOLECALCIFEROL
     Route: 048
     Dates: start: 2014
  3. OCREVUS [Suspect]
     Active Substance: OCRELIZUMAB
     Dosage: 3 INFUSION
     Route: 042
     Dates: start: 20181001

REACTIONS (11)
  - Meningitis enteroviral [Recovering/Resolving]
  - Pleocytosis [Recovering/Resolving]
  - Mean cell volume decreased [Unknown]
  - Lymphocyte count decreased [Unknown]
  - Blood uric acid decreased [Unknown]
  - Meningism [Recovering/Resolving]
  - C-reactive protein increased [Unknown]
  - Hepatic cyst [Recovering/Resolving]
  - Blood immunoglobulin E increased [Unknown]
  - Lipase increased [Unknown]
  - Monocyte count increased [Unknown]
